FAERS Safety Report 18330326 (Version 1)
Quarter: 2020Q3

REPORT INFORMATION
  Report Type: Report from Study
  Country: JP (occurrence: JP)
  Receive Date: 20200930
  Receipt Date: 20200930
  Transmission Date: 20201103
  Serious: Yes (Death, Other)
  Sender: FDA-Public Use
  Company Number: JP-JNJFOC-A-NJ2020-205378

PATIENT
  Age: 65 Year
  Sex: Female

DRUGS (10)
  1. ONEALFA [Concomitant]
     Active Substance: ALFACALCIDOL
  2. RABEPRAZOLE SODIUM. [Concomitant]
     Active Substance: RABEPRAZOLE SODIUM
  3. DIGOXIN. [Concomitant]
     Active Substance: DIGOXIN
  4. ADALAT [Concomitant]
     Active Substance: NIFEDIPINE
     Dosage: 10 MG
  5. AZULFIDINE EN?TABS [Concomitant]
     Active Substance: SULFASALAZINE
  6. VENTAVIS [Suspect]
     Active Substance: ILOPROST
     Indication: PULMONARY ARTERIAL HYPERTENSION
     Dosage: 5 MCG, 6 TIMES A DAY
     Route: 055
     Dates: start: 20170325, end: 20171126
  7. BOSENTAN MONOHYDRATE [Concomitant]
     Active Substance: BOSENTAN
  8. REVATIO [Concomitant]
     Active Substance: SILDENAFIL CITRATE
  9. BISOPROLOL FUMARATE. [Concomitant]
     Active Substance: BISOPROLOL FUMARATE
  10. OLMETEC [Concomitant]
     Active Substance: OLMESARTAN MEDOXOMIL

REACTIONS (5)
  - Gastric cancer [Fatal]
  - Pneumonia aspiration [Fatal]
  - Respiratory disorder [Unknown]
  - Influenza [Fatal]
  - Pulmonary hypertension [Unknown]

NARRATIVE: CASE EVENT DATE: 20171122
